FAERS Safety Report 8007727-3 (Version None)
Quarter: 2011Q4

REPORT INFORMATION
  Report Type: 
  Country: None (occurrence: None)
  Receive Date: 20111227
  Receipt Date: 20110207
  Transmission Date: 20120403
  Serious: No
  Sender: FDA-Public Use
  Company Number: US-ABBOTT-11P-163-0704236-00

PATIENT
  Age: 65 Year
  Sex: Male
  Weight: 113.5 kg

DRUGS (2)
  1. LUPRON DEPOT [Suspect]
     Indication: PROSTATE CANCER
     Dates: start: 20110101, end: 20110101
  2. LUPRON DEPOT [Suspect]
     Indication: PROSTATE CANCER
     Dates: start: 20100601, end: 20101201

REACTIONS (2)
  - INCORRECT DOSE ADMINISTERED [None]
  - PROSTATIC SPECIFIC ANTIGEN INCREASED [None]
